FAERS Safety Report 7607286-0 (Version None)
Quarter: 2011Q3

REPORT INFORMATION
  Report Type: 
  Country: None (occurrence: None)
  Receive Date: 20110712
  Receipt Date: 20110712
  Transmission Date: 20111222
  Serious: Yes (Life-Threatening, Hospitalization, Other)
  Sender: FDA-Public Use
  Company Number: None

PATIENT
  Sex: Male
  Weight: 68.0396 kg

DRUGS (1)
  1. PROPECIA [Suspect]
     Indication: ALOPECIA
     Dosage: 1MG ONCE TABLET A DAY PO
     Route: 048
     Dates: start: 20090623, end: 20090901

REACTIONS (43)
  - DEPRESSION [None]
  - APATHY [None]
  - IRRITABILITY [None]
  - SLEEP DISORDER [None]
  - DARK CIRCLES UNDER EYES [None]
  - DYSURIA [None]
  - LIBIDO DECREASED [None]
  - FEELING ABNORMAL [None]
  - AMNESIA [None]
  - RESTLESSNESS [None]
  - HEADACHE [None]
  - DYSARTHRIA [None]
  - GASTROOESOPHAGEAL REFLUX DISEASE [None]
  - HEPATIC PAIN [None]
  - VISION BLURRED [None]
  - PANIC ATTACK [None]
  - FLAT AFFECT [None]
  - PRURITUS [None]
  - MENTAL IMPAIRMENT [None]
  - TESTICULAR DISORDER [None]
  - MUSCLE TWITCHING [None]
  - SOCIAL AVOIDANT BEHAVIOUR [None]
  - MICTURITION URGENCY [None]
  - ARTHROPATHY [None]
  - PENILE SIZE REDUCED [None]
  - DISTURBANCE IN ATTENTION [None]
  - INSOMNIA [None]
  - URINARY RETENTION [None]
  - ANXIETY [None]
  - PALPITATIONS [None]
  - AFFECTIVE DISORDER [None]
  - DYSPHEMIA [None]
  - BLEPHAROSPASM [None]
  - ERECTILE DYSFUNCTION [None]
  - TESTICULAR PAIN [None]
  - CRYING [None]
  - SOMNOLENCE [None]
  - TINNITUS [None]
  - WEIGHT FLUCTUATION [None]
  - PHOBIA [None]
  - PARANOIA [None]
  - SUICIDAL IDEATION [None]
  - FATIGUE [None]
